FAERS Safety Report 6035733-7 (Version None)
Quarter: 2009Q1

REPORT INFORMATION
  Report Type: 
  Country: None (occurrence: None)
  Receive Date: 20090113
  Receipt Date: 20090105
  Transmission Date: 20090719
  Serious: Yes (Other)
  Sender: FDA-Public Use
  Company Number: US-AMGEN-QUU326930

PATIENT
  Sex: Female

DRUGS (2)
  1. ENBREL [Suspect]
     Indication: RHEUMATOID ARTHRITIS
     Route: 058
     Dates: start: 20041220
  2. METHOTREXATE [Concomitant]
     Route: 048

REACTIONS (9)
  - BACK PAIN [None]
  - BLOOD PRESSURE INCREASED [None]
  - BLOOD URINE PRESENT [None]
  - HYPOAESTHESIA [None]
  - NASOPHARYNGITIS [None]
  - NEPHROLITHIASIS [None]
  - PARAESTHESIA [None]
  - PROCEDURAL COMPLICATION [None]
  - URINARY TRACT INFECTION [None]
